FAERS Safety Report 4318940-0 (Version None)
Quarter: 2004Q1

REPORT INFORMATION
  Report Type: 
  Country: None (occurrence: None)
  Receive Date: 20040318
  Receipt Date: 20040308
  Transmission Date: 20041129
  Serious: Yes (Other)
  Sender: FDA-Public Use
  Company Number: GB-BRISTOL-MYERS SQUIBB COMPANY-12526406

PATIENT
  Age: 67 Year
  Sex: Female

DRUGS (12)
  1. NYSTATIN [Suspect]
     Indication: CANDIDIASIS
     Route: 048
     Dates: start: 20040215, end: 20040223
  2. FLUCONAZOLE [Suspect]
     Indication: CANDIDIASIS
     Route: 048
     Dates: start: 20040216, end: 20040223
  3. PREDNISOLONE [Concomitant]
  4. PARACETAMOL BIOGARAN [Concomitant]
  5. COMBIVENT [Concomitant]
  6. ASPIRIN [Concomitant]
  7. THYROXINE [Concomitant]
  8. NICOTINE [Concomitant]
     Route: 061
  9. TAMOXIFEN CITRATE [Concomitant]
  10. CIPROFLOXACIN [Concomitant]
  11. DIAZEPAM [Concomitant]
  12. SODIUM CHLORIDE [Concomitant]

REACTIONS (1)
  - BLOOD POTASSIUM DECREASED [None]
